FAERS Safety Report 10717924 (Version 2)
Quarter: 2015Q1

REPORT INFORMATION
  Report Type: Spontaneous
  Country: JP (occurrence: JP)
  Receive Date: 20150116
  Receipt Date: 20150123
  Transmission Date: 20150721
  Serious: Yes (Hospitalization)
  Sender: FDA-Public Use
  Company Number: JP-ASTRAZENECA-2015SE03310

PATIENT
  Age: 77 Year
  Sex: Female
  Weight: 49 kg

DRUGS (10)
  1. NAUZELIN OD [Concomitant]
     Indication: GASTRITIS
     Route: 050
     Dates: start: 2012
  2. UBIRON [Concomitant]
     Indication: CHOLELITHOTOMY
     Route: 050
     Dates: start: 201401
  3. CARBOCISTEINE [Concomitant]
     Active Substance: CARBOCYSTEINE
     Route: 050
  4. TANATRIL [Concomitant]
     Active Substance: IMIDAPRIL
     Indication: PROPHYLAXIS AGAINST GASTROINTESTINAL ULCER
     Route: 050
     Dates: start: 20120818
  5. NEXIUM [Suspect]
     Active Substance: ESOMEPRAZOLE MAGNESIUM
     Indication: PROPHYLAXIS AGAINST GASTROINTESTINAL ULCER
     Route: 048
     Dates: start: 20121016, end: 20150108
  6. MYSLEE [Concomitant]
     Active Substance: ZOLPIDEM TARTRATE
     Indication: INSOMNIA
     Route: 050
     Dates: start: 20121001
  7. CARVISKEN [Concomitant]
     Indication: PALPITATIONS
     Route: 050
  8. RILUTEK [Concomitant]
     Active Substance: RILUZOLE
     Indication: AMYOTROPHIC LATERAL SCLEROSIS
     Route: 050
     Dates: start: 20120808
  9. RACOL-NF [Concomitant]
     Indication: AMYOTROPHIC LATERAL SCLEROSIS
     Route: 050
     Dates: start: 2012, end: 20150107
  10. RIZE [Concomitant]
     Active Substance: CLOTIAZEPAM
     Indication: PALPITATIONS
     Route: 050

REACTIONS (1)
  - Hyponatraemia [Not Recovered/Not Resolved]

NARRATIVE: CASE EVENT DATE: 20150106
